FAERS Safety Report 5327977-4 (Version None)
Quarter: 2007Q2

REPORT INFORMATION
  Report Type: 
  Country: None (occurrence: None)
  Receive Date: 20070517
  Receipt Date: 20070508
  Transmission Date: 20071010
  Serious: Yes (Hospitalization, Other)
  Sender: FDA-Public Use
  Company Number: US-PFIZER INC-2007037451

PATIENT
  Sex: Male
  Weight: 67 kg

DRUGS (1)
  1. GENOTROPIN [Suspect]
     Indication: PRADER-WILLI SYNDROME
     Dosage: DAILY DOSE:2.6MG
     Route: 058

REACTIONS (2)
  - CHOLELITHIASIS [None]
  - PANCREATITIS [None]
